FAERS Safety Report 9748165 (Version 3)
Quarter: 2014Q1

REPORT INFORMATION
  Report Type: Spontaneous
  Country: US (occurrence: US)
  Receive Date: 20131212
  Receipt Date: 20140214
  Transmission Date: 20141002
  Serious: No
  Sender: FDA-Public Use
  Company Number: US-PFIZER INC-2013350864

PATIENT
  Sex: Female

DRUGS (1)
  1. ADVIL PM [Suspect]
     Indication: SLEEP DISORDER
     Dosage: HALF TABLET, AS NEEDED
     Route: 048

REACTIONS (4)
  - Head discomfort [Unknown]
  - Drug ineffective [Unknown]
  - Malaise [Unknown]
  - Blood glucose increased [Unknown]
